FAERS Safety Report 8323230-5 (Version None)
Quarter: 2012Q2

REPORT INFORMATION
  Report Type: 
  Country: None (occurrence: None)
  Receive Date: 20120430
  Receipt Date: 20120418
  Transmission Date: 20120825
  Serious: Yes (Hospitalization)
  Sender: FDA-Public Use
  Company Number: FR-PFIZER INC-2012100712

PATIENT
  Age: 15 Year
  Sex: Female

DRUGS (6)
  1. GEMZAR [Suspect]
     Indication: NEOPLASM
     Dosage: 750 MG/MA? EQUIVALENT TO 1100MG ADMINISTERED IN 90 MIN
     Route: 042
     Dates: start: 20120110, end: 20120110
  2. ATARAX [Suspect]
     Indication: PREMEDICATION
     Dosage: UNK
     Route: 048
     Dates: start: 20120110, end: 20120110
  3. SOLU-MEDROL [Suspect]
     Indication: PREMEDICATION
     Dosage: UNK
     Route: 042
     Dates: start: 20120110, end: 20120110
  4. ZOFRAN [Suspect]
     Indication: ANTIEMETIC SUPPORTIVE CARE
     Dosage: UNK
     Route: 048
     Dates: start: 20120110, end: 20120110
  5. PLITICAN [Suspect]
     Indication: ANTIEMETIC SUPPORTIVE CARE
     Dosage: UNK
     Route: 042
     Dates: start: 20120110, end: 20120110
  6. TAXOTERE [Suspect]
     Indication: NEOPLASM
     Dosage: 100 MG/MA? EQUIVALENT TO 150MG ADMINISTERED IN 1HOUR
     Route: 042
     Dates: start: 20120110, end: 20120110

REACTIONS (2)
  - ARTHRALGIA [None]
  - ERYTHEMA [None]
